FAERS Safety Report 5286082-6 (Version None)
Quarter: 2007Q2

REPORT INFORMATION
  Report Type: 
  Country: None (occurrence: None)
  Receive Date: 20070404
  Receipt Date: 20070327
  Transmission Date: 20071010
  Serious: Yes (Hospitalization)
  Sender: FDA-Public Use
  Company Number: HQWYE908127MAR07

PATIENT
  Age: 87 Year
  Sex: Female

DRUGS (15)
  1. ARICEPT [Suspect]
     Dosage: NI UNK
     Route: 048
     Dates: end: 20061023
  2. MIANSERIN [Suspect]
     Dosage: NI UNK
     Route: 048
     Dates: end: 20061023
  3. OMEPRAZOLE [Suspect]
     Dosage: NI UNK
     Route: 048
     Dates: end: 20061023
  4. FUROSEMIDE [Suspect]
     Dosage: NI UNK
     Route: 048
     Dates: end: 20061023
  5. AMIODARONE HCL [Suspect]
     Dosage: NI UNK
     Route: 048
  6. DAFALGAN [Concomitant]
     Dosage: UNKNOWN
     Route: 048
     Dates: end: 20061001
  7. DIFFU K [Concomitant]
     Dosage: UNKNOWN
     Route: 048
     Dates: end: 20061001
  8. DUSPATALIN [Concomitant]
     Dosage: UNKNOWN
     Route: 048
     Dates: end: 20061001
  9. COLCHIMAX [Concomitant]
     Dosage: UNKNOWN
     Route: 048
     Dates: end: 20061001
  10. ALPRAZOLAM [Concomitant]
     Dosage: UNKNOWN
     Route: 048
  11. PLAVIX [Concomitant]
     Dosage: UNKNOWN
     Route: 048
  12. MONICOR L.P. [Concomitant]
     Dosage: UNKNOWN
     Route: 048
  13. LEVOTHYROXINE SODIUM [Concomitant]
     Dosage: UNKNOWN
     Route: 048
  14. UMULINE [Concomitant]
     Dosage: UNKNOWN
     Route: 048
  15. DILTIAZEM [Suspect]
     Indication: BLOOD PRESSURE INCREASED
     Dosage: NI UNK
     Route: 048

REACTIONS (10)
  - ABDOMINAL PAIN [None]
  - ALANINE AMINOTRANSFERASE INCREASED [None]
  - ASPARTATE AMINOTRANSFERASE INCREASED [None]
  - ASTHENIA [None]
  - BLOOD ALKALINE PHOSPHATASE INCREASED [None]
  - C-REACTIVE PROTEIN INCREASED [None]
  - CELL DEATH [None]
  - CHOLESTASIS [None]
  - GAMMA-GLUTAMYLTRANSFERASE INCREASED [None]
  - NAUSEA [None]
